FAERS Safety Report 4995671-5 (Version None)
Quarter: 2006Q1

REPORT INFORMATION
  Report Type: 
  Country: None (occurrence: None)
  Receive Date: 20060315
  Receipt Date: 20060110
  Transmission Date: 20060701
  Serious: Yes (Other)
  Sender: FDA-Public Use
  Company Number: 431789

PATIENT
  Age: 60 Year
  Sex: Female
  Weight: 77.1 kg

DRUGS (5)
  1. BONIVA [Suspect]
     Indication: OSTEOPOROSIS
     Dosage: 150 MG 1 PER MONTH ORAL
     Route: 048
     Dates: start: 20051115, end: 20060108
  2. PREMARIN [Concomitant]
  3. 1 CONCOMITANT DRUG (GENERIC UNKNOWN) [Concomitant]
  4. LIPITOR [Concomitant]
  5. 1 CONCOMITANT DRUG (GENERIC UNKNOWN) [Concomitant]

REACTIONS (2)
  - ABDOMINAL PAIN [None]
  - ABNORMAL FAECES [None]
